FAERS Safety Report 20349809 (Version 1)
Quarter: 2022Q1

REPORT INFORMATION
  Report Type: Spontaneous
  Country: US (occurrence: None)
  Receive Date: 20220119
  Receipt Date: 20220119
  Transmission Date: 20220424
  Serious: Yes (Other)
  Sender: FDA-Public Use
  Company Number: US-Hikma Pharmaceuticals USA Inc.-US-H14001-22-00171

PATIENT
  Age: 41 Year
  Sex: Female
  Weight: 84.82 kg

DRUGS (7)
  1. METHADONE [Suspect]
     Active Substance: METHADONE HYDROCHLORIDE
     Indication: Pain
     Route: 065
  2. METHADONE [Suspect]
     Active Substance: METHADONE HYDROCHLORIDE
     Route: 065
  3. PFIZER-BIONTECH COVID-19 VACCINE [Suspect]
     Active Substance: TOZINAMERAN
     Indication: Product used for unknown indication
     Route: 065
     Dates: start: 20210331, end: 20210331
  4. PFIZER-BIONTECH COVID-19 VACCINE [Suspect]
     Active Substance: TOZINAMERAN
     Route: 065
     Dates: start: 20210421, end: 20210421
  5. SYMBICORT [Concomitant]
     Active Substance: BUDESONIDE\FORMOTEROL FUMARATE DIHYDRATE
     Indication: Asthma
     Dosage: UNKNOWN
     Route: 065
  6. TOPROL XL [Concomitant]
     Active Substance: METOPROLOL SUCCINATE
     Indication: Product used for unknown indication
     Route: 065
  7. LASIX [Concomitant]
     Active Substance: FUROSEMIDE
     Indication: Product used for unknown indication
     Route: 065

REACTIONS (31)
  - Cardiac failure [Unknown]
  - Heart rate irregular [Unknown]
  - Drug ineffective [Unknown]
  - Malaise [Unknown]
  - Dyspnoea [Unknown]
  - Musculoskeletal discomfort [Unknown]
  - Constipation [Unknown]
  - Visual impairment [Unknown]
  - Limb discomfort [Unknown]
  - Drug withdrawal syndrome [Unknown]
  - Epistaxis [Unknown]
  - Soft tissue necrosis [Unknown]
  - Off label use [Unknown]
  - COVID-19 [Unknown]
  - Bronchitis [Unknown]
  - Gastrooesophageal reflux disease [Unknown]
  - Fluid retention [Unknown]
  - Glucose tolerance impaired [Unknown]
  - Hypertension [Unknown]
  - Blood cholesterol increased [Unknown]
  - Asthma [Unknown]
  - Bundle branch block left [Unknown]
  - Chronic obstructive pulmonary disease [Unknown]
  - Hip fracture [Unknown]
  - Drug abuse [Unknown]
  - Pneumonia [Unknown]
  - Cardiac disorder [Unknown]
  - Asthenia [Unknown]
  - Feeling abnormal [Unknown]
  - Food craving [Unknown]
  - Drug dependence [Unknown]

NARRATIVE: CASE EVENT DATE: 20010911
